FAERS Safety Report 25727931 (Version 1)
Quarter: 2025Q3

REPORT INFORMATION
  Report Type: Spontaneous
  Country: US (occurrence: None)
  Receive Date: 20250826
  Receipt Date: 20250826
  Transmission Date: 20251021
  Serious: Yes (Death)
  Sender: FDA-CTU
  Company Number: None

PATIENT
  Sex: Female

DRUGS (3)
  1. CLINDAMYCIN [Suspect]
     Active Substance: CLINDAMYCIN
  2. AMOXICILLIN [Suspect]
     Active Substance: AMOXICILLIN
  3. PANTOPRAZOLE [Concomitant]
     Active Substance: PANTOPRAZOLE

REACTIONS (9)
  - Clostridium difficile colitis [None]
  - Vomiting [None]
  - Sepsis [None]
  - Hyponatraemia [None]
  - Megacolon [None]
  - Heart rate increased [None]
  - Acute kidney injury [None]
  - Disseminated intravascular coagulation [None]
  - Post procedural haemorrhage [None]

NARRATIVE: CASE EVENT DATE: 20240122
